FAERS Safety Report 19861108 (Version 1)
Quarter: 2021Q3

REPORT INFORMATION
  Report Type: Spontaneous
  Country: CN (occurrence: CN)
  Receive Date: 20210921
  Receipt Date: 20210921
  Transmission Date: 20211014
  Serious: Yes (Other)
  Sender: FDA-Public Use
  Company Number: CN-BAXTER-2021BAX029158

PATIENT
  Age: 9 Year
  Sex: Male
  Weight: 25.7 kg

DRUGS (5)
  1. 5% GLUCOSE AND 0.9% SODIUM CHLORIDE INJECTION [Suspect]
     Active Substance: DEXTROSE\SODIUM CHLORIDE
     Dosage: CYTARABINE FOR INJECTION 0.915G + (4:1) GLUCOSE AND SODIUM CHLORIDE
     Route: 041
     Dates: start: 20210802, end: 20210804
  2. MERCAPTOPURINE. [Suspect]
     Active Substance: MERCAPTOPURINE
     Indication: ACUTE LYMPHOCYTIC LEUKAEMIA
     Dosage: FORM OF ADMIN: TABLET
     Route: 048
     Dates: start: 20210802, end: 20210808
  3. 5% GLUCOSE AND 0.9% SODIUM CHLORIDE INJECTION [Suspect]
     Active Substance: DEXTROSE\SODIUM CHLORIDE
     Indication: MEDICATION DILUTION
     Dosage: CYCLOPHOSPHAMIDE FOR INJECTION 0.915G + (4:1) GLUCOSE AND SODIUM CHLORIDE
     Route: 041
     Dates: start: 20210802, end: 20210802
  4. ENDOXAN [Suspect]
     Active Substance: CYCLOPHOSPHAMIDE
     Indication: ACUTE LYMPHOCYTIC LEUKAEMIA
     Dosage: CYCLOPHOSPHAMIDE FOR INJECTION 0.915G + (4:1) GLUCOSE AND SODIUM CHLORIDE
     Route: 041
     Dates: start: 20210802, end: 20210802
  5. CYTARABINE. [Suspect]
     Active Substance: CYTARABINE
     Indication: ACUTE LYMPHOCYTIC LEUKAEMIA
     Dosage: CYTARABINE FOR INJECTION 0.915G + (4:1) GLUCOSE AND SODIUM CHLORIDE
     Route: 041
     Dates: start: 20210802, end: 20210804

REACTIONS (1)
  - Myelosuppression [Recovering/Resolving]

NARRATIVE: CASE EVENT DATE: 20210811
